FAERS Safety Report 24408768 (Version 1)
Quarter: 2024Q4

REPORT INFORMATION
  Report Type: Spontaneous
  Country: US (occurrence: US)
  Receive Date: 20241007
  Receipt Date: 20241007
  Transmission Date: 20250115
  Serious: No
  Sender: RECKITT BENCKISER
  Company Number: US-Indivior Limited-INDV-145700-2024

PATIENT
  Age: 42 Year
  Sex: Male

DRUGS (4)
  1. SUBLOCADE [Suspect]
     Active Substance: BUPRENORPHINE
     Indication: Drug dependence
     Dosage: 100 MILLIGRAM, QMO
     Route: 065
     Dates: start: 202403
  2. SUBLOCADE [Suspect]
     Active Substance: BUPRENORPHINE
  3. BUPRENORPHINE [Suspect]
     Active Substance: BUPRENORPHINE
     Indication: Drug dependence
     Dosage: UNK
     Route: 065
     Dates: end: 2024
  4. SEROQUEL [Concomitant]
     Active Substance: QUETIAPINE FUMARATE
     Indication: Anxiety
     Dosage: UNK
     Route: 065

REACTIONS (1)
  - Oedema peripheral [Not Recovered/Not Resolved]

NARRATIVE: CASE EVENT DATE: 20240101
